FAERS Safety Report 10954369 (Version 1)
Quarter: 2015Q1

REPORT INFORMATION
  Report Type: Report from Study
  Country: US (occurrence: US)
  Receive Date: 20150325
  Receipt Date: 20150325
  Transmission Date: 20150721
  Serious: Yes (Hospitalization)
  Sender: FDA-Public Use
  Company Number: US-009507513-1503USA011622

PATIENT
  Age: 68 Year
  Sex: Male

DRUGS (4)
  1. VINCRISTINE SULFATE. [Suspect]
     Active Substance: VINCRISTINE SULFATE
     Indication: PLASMA CELL MYELOMA
     Dosage: 2 MG, ONCE (STRENGTH: 2MG/2ML)
     Route: 042
     Dates: start: 20131115, end: 20131115
  2. DOXIL [Suspect]
     Active Substance: DOXORUBICIN HYDROCHLORIDE
     Indication: PLASMA CELL MYELOMA
     Dosage: 80 MG, ONCE (STRENGTH: 2MG/MG 10 ML SINGLE DOSE VIAL (SDV))
     Route: 042
     Dates: start: 20131115, end: 20131115
  3. DOXIL [Suspect]
     Active Substance: DOXORUBICIN HYDROCHLORIDE
     Indication: PLASMA CELL MYELOMA
     Dosage: (STRENGTH: 2 MG/ML 25 ML SINGLE DOSE VIAL (SDV))
     Route: 042
     Dates: start: 20131115, end: 20131115
  4. HEXADROL [Suspect]
     Active Substance: DEXAMETHASONE
     Indication: PLASMA CELL MYELOMA
     Dosage: 40 MG, QW
     Route: 048
     Dates: start: 20131115, end: 20131210

REACTIONS (2)
  - Atrial flutter [Unknown]
  - Pneumonia [Unknown]

NARRATIVE: CASE EVENT DATE: 20131122
